FAERS Safety Report 13083343 (Version 1)
Quarter: 2017Q1

REPORT INFORMATION
  Report Type: Spontaneous
  Country: US (occurrence: US)
  Receive Date: 20170104
  Receipt Date: 20170104
  Transmission Date: 20170428
  Serious: No
  Sender: FDA-Public Use
  Company Number: US-EDISON THERAPEUTICS, LLC-2016-04917

PATIENT
  Sex: Female
  Weight: 68.55 kg

DRUGS (1)
  1. METHERGINE [Suspect]
     Active Substance: METHYLERGONOVINE MALEATE
     Indication: MENORRHAGIA
     Route: 048
     Dates: start: 2005

REACTIONS (4)
  - Presyncope [Recovered/Resolved]
  - Disorientation [Recovered/Resolved]
  - Dizziness [Recovered/Resolved]
  - Feeling abnormal [Recovered/Resolved]
